FAERS Safety Report 20015607 (Version 1)
Quarter: 2021Q4

REPORT INFORMATION
  Report Type: Spontaneous
  Country: US (occurrence: None)
  Receive Date: 20211101
  Receipt Date: 20211101
  Transmission Date: 20220304
  Serious: Yes (Other)
  Sender: FDA-Public Use
  Company Number: None

PATIENT
  Age: 36 Year
  Sex: Male
  Weight: 78.9 kg

DRUGS (6)
  1. CASIRIVIMAB [Suspect]
     Active Substance: CASIRIVIMAB
     Indication: COVID-19
     Dosage: OTHER FREQUENCY : ONCE;?
     Route: 042
  2. IMDEVIMAB [Suspect]
     Active Substance: IMDEVIMAB
     Indication: COVID-19
     Dosage: OTHER FREQUENCY : ONCE;?
     Route: 042
  3. DICLOFENAC [Concomitant]
     Active Substance: DICLOFENAC
  4. INDOMETHACIN [Concomitant]
     Active Substance: INDOMETHACIN
  5. NAPROXEN [Concomitant]
     Active Substance: NAPROXEN
  6. VERAPAMIL [Concomitant]
     Active Substance: VERAPAMIL HYDROCHLORIDE

REACTIONS (6)
  - Headache [None]
  - Chest discomfort [None]
  - Hyperhidrosis [None]
  - Dyspnoea [None]
  - Infusion related reaction [None]
  - Oxygen saturation decreased [None]
